FAERS Safety Report 21341791 (Version 1)
Quarter: 2022Q3

REPORT INFORMATION
  Report Type: Spontaneous
  Country: US (occurrence: US)
  Receive Date: 20220916
  Receipt Date: 20220916
  Transmission Date: 20221027
  Serious: No
  Sender: FDA-Public Use
  Company Number: US-SA-SAC20220915001141

PATIENT
  Sex: Female
  Weight: 54.43 kg

DRUGS (15)
  1. DUPIXENT [Suspect]
     Active Substance: DUPILUMAB
     Indication: Dyshidrotic eczema
     Dosage: 300 MG QOW
     Route: 058
  2. DUPIXENT [Suspect]
     Active Substance: DUPILUMAB
     Indication: Hypergammaglobulinaemia
  3. DUPIXENT [Suspect]
     Active Substance: DUPILUMAB
     Indication: Osteoporosis
  4. TYMLOS [Suspect]
     Active Substance: ABALOPARATIDE
     Dosage: 40 MCG
  5. DEXILANT [Concomitant]
     Active Substance: DEXLANSOPRAZOLE
  6. GAMUNEX [Concomitant]
     Active Substance: HUMAN IMMUNOGLOBULIN G
  7. AZELASTINE [Concomitant]
     Active Substance: AZELASTINE
  8. PRAMIPEXOLE DIHYDROCHLORIDE [Concomitant]
     Active Substance: PRAMIPEXOLE DIHYDROCHLORIDE
  9. BACTRIM [Concomitant]
     Active Substance: SULFAMETHOXAZOLE\TRIMETHOPRIM
  10. CALCIUM [Concomitant]
     Active Substance: CALCIUM
  11. VITAMIN D3 [Concomitant]
     Active Substance: CHOLECALCIFEROL
  12. PREGABALIN [Concomitant]
     Active Substance: PREGABALIN
  13. VALTREX [Concomitant]
     Active Substance: VALACYCLOVIR HYDROCHLORIDE
  14. AMBIEN [Concomitant]
     Active Substance: ZOLPIDEM TARTRATE
  15. CYMBALTA [Concomitant]
     Active Substance: DULOXETINE HYDROCHLORIDE

REACTIONS (4)
  - Dizziness [Unknown]
  - Chest discomfort [Unknown]
  - Feeling abnormal [Unknown]
  - Product use in unapproved indication [Unknown]
